FAERS Safety Report 8583506 (Version 2)
Quarter: 2013Q4

REPORT INFORMATION
  Report Type: Spontaneous
  Country: DE (occurrence: DE)
  Receive Date: 20120529
  Receipt Date: 20131220
  Transmission Date: 20140711
  Serious: Yes (Hospitalization)
  Sender: FDA-Public Use
  Company Number: DE-BAYER-2012-051870

PATIENT
  Age: 16 Year
  Sex: Female
  Weight: 57 kg

DRUGS (2)
  1. YAZ [Suspect]
     Indication: MENORRHAGIA
     Dosage: 1 DF, QD
     Route: 048
     Dates: start: 200902, end: 201003
  2. YAZ [Suspect]
     Indication: POLYMENORRHOEA

REACTIONS (3)
  - Fibroadenoma of breast [Unknown]
  - Incorrect drug administration duration [None]
  - Off label use [None]
